FAERS Safety Report 4421411-4 (Version None)
Quarter: 2004Q3

REPORT INFORMATION
  Report Type: 
  Country: None (occurrence: None)
  Receive Date: 20040709
  Receipt Date: 20040608
  Transmission Date: 20050211
  Serious: No
  Sender: FDA-Public Use
  Company Number: 2004S1000120

PATIENT
  Age: 63 Year
  Sex: Male
  Weight: 103.6 kg

DRUGS (9)
  1. CUBICIN [Suspect]
     Indication: ENDOCARDITIS
     Dosage: 6 MG/KG; TIW; IV
     Route: 042
     Dates: start: 20040101
  2. CUBICIN [Suspect]
     Indication: ENTEROCOCCAL BACTERAEMIA
     Dosage: 6 MG/KG; TIW; IV
     Route: 042
     Dates: start: 20040101
  3. FLOMAX [Concomitant]
  4. ALTACE [Concomitant]
  5. TOPROL-XL [Concomitant]
  6. DIGOXIN [Concomitant]
  7. ALDACTONE [Concomitant]
  8. ECOTRIN [Concomitant]
  9. MULTI-VITAMIN [Concomitant]

REACTIONS (1)
  - ABDOMINAL PAIN [None]
